FAERS Safety Report 24636332 (Version 7)
Quarter: 2025Q3

REPORT INFORMATION
  Report Type: Report from Study
  Country: US (occurrence: US)
  Receive Date: 20241119
  Receipt Date: 20250902
  Transmission Date: 20251021
  Serious: Yes (Hospitalization, Other)
  Sender: TAKEDA
  Company Number: US-TAKEDA-2024TUS035592

PATIENT
  Sex: Female

DRUGS (26)
  1. MARIBAVIR [Suspect]
     Active Substance: MARIBAVIR
     Indication: Cytomegalovirus infection
     Dosage: 400 MILLIGRAM, BID
     Dates: start: 20240415
  2. MARIBAVIR [Suspect]
     Active Substance: MARIBAVIR
     Dosage: 400 MILLIGRAM, BID
  3. MARIBAVIR [Suspect]
     Active Substance: MARIBAVIR
     Dosage: 400 MILLIGRAM, BID
     Dates: start: 20240725
  4. MARIBAVIR [Suspect]
     Active Substance: MARIBAVIR
     Dosage: 400 MILLIGRAM, BID
     Dates: start: 20241113
  5. MARIBAVIR [Suspect]
     Active Substance: MARIBAVIR
     Dosage: 200 MILLIGRAM, BID
     Dates: start: 20250617
  6. MARIBAVIR [Suspect]
     Active Substance: MARIBAVIR
     Dosage: 400 MILLIGRAM, BID
  7. COUMADIN [Suspect]
     Active Substance: WARFARIN SODIUM
     Indication: Anticoagulant therapy
  8. PROVENTIL HFA [Concomitant]
     Active Substance: ALBUTEROL SULFATE
     Indication: Wheezing
     Dosage: 90 MICROGRAM, Q6HR
  9. Metrix [Concomitant]
  10. WELLBUTRIN XL [Concomitant]
     Active Substance: BUPROPION HYDROCHLORIDE
     Dosage: 300 MILLIGRAM, QD
  11. CALCIUM CARBONATE [Concomitant]
     Active Substance: CALCIUM CARBONATE
     Dosage: 1250 MILLIGRAM, QD
  12. COREG [Concomitant]
     Active Substance: CARVEDILOL
     Dosage: 6.25 MILLIGRAM, BID
  13. CHOLECALCIFEROL [Concomitant]
     Active Substance: CHOLECALCIFEROL
     Dosage: 25 MICROGRAM, QD
  14. VITAMIN D3 [Concomitant]
     Active Substance: CHOLECALCIFEROL
     Dosage: 1000 INTERNATIONAL UNIT, QD
  15. DEPAKOTE [Concomitant]
     Active Substance: DIVALPROEX SODIUM
  16. JARDIANCE [Concomitant]
     Active Substance: EMPAGLIFLOZIN
     Dosage: 10 MILLIGRAM, QD
  17. ZETIA [Concomitant]
     Active Substance: EZETIMIBE
  18. FOLVITE [Concomitant]
     Active Substance: FOLIC ACID
     Dosage: 1 MILLIGRAM, QD
  19. GLUCOTROL [Concomitant]
     Active Substance: GLIPIZIDE
  20. TRESIBA [Concomitant]
     Active Substance: INSULIN DEGLUDEC
  21. LANTUS SOLOSTAR [Concomitant]
     Active Substance: INSULIN GLARGINE
  22. SYNTHROID [Concomitant]
     Active Substance: LEVOTHYROXINE SODIUM
     Dosage: 150 MICROGRAM, QD
  23. DELTASONE [Concomitant]
     Active Substance: PREDNISONE
     Dosage: 10 MILLIGRAM, QD
  24. RAPAMUNE [Concomitant]
     Active Substance: SIROLIMUS
     Dosage: 1 MILLIGRAM, QD
  25. SONATA [Concomitant]
     Active Substance: ZALEPLON
  26. VALCYTE [Concomitant]
     Active Substance: VALGANCICLOVIR HYDROCHLORIDE

REACTIONS (12)
  - Cytomegalovirus infection reactivation [Unknown]
  - Platelet count decreased [Unknown]
  - Contusion [Unknown]
  - Somnolence [Unknown]
  - Urticaria [Unknown]
  - Dyspnoea [Unknown]
  - Pleural effusion [Unknown]
  - Hyperlipidaemia [Unknown]
  - Hypertension [Unknown]
  - Urinary tract infection [Unknown]
  - Fatigue [Unknown]
  - Dysgeusia [Unknown]
